FAERS Safety Report 5700316-2 (Version None)
Quarter: 2008Q2

REPORT INFORMATION
  Report Type: 
  Country: None (occurrence: None)
  Receive Date: 20080410
  Receipt Date: 20080402
  Transmission Date: 20081010
  Serious: Yes (Hospitalization)
  Sender: FDA-Public Use
  Company Number: B0511991A

PATIENT
  Sex: Female
  Weight: 3.5 kg

DRUGS (6)
  1. PAXIL [Suspect]
     Indication: PERSONALITY DISORDER
     Dosage: 20MG PER DAY
     Dates: end: 20080215
  2. LEVOTOMIN [Suspect]
     Indication: PERSONALITY DISORDER
     Dosage: 75MG PER DAY
     Dates: end: 20080214
  3. RIVOTRIL [Concomitant]
     Dates: end: 20080215
  4. LITHIUM CARBONATE [Concomitant]
     Dates: end: 20080215
  5. LITHIUM CARBONATE [Concomitant]
     Indication: PERSONALITY DISORDER
     Dosage: 600MG PER DAY
     Dates: end: 20080214
  6. TOLEDOMIN [Concomitant]
     Indication: PERSONALITY DISORDER
     Dosage: 75MG PER DAY
     Dates: end: 20080214

REACTIONS (7)
  - DRUG EXPOSURE DURING PREGNANCY [None]
  - DRUG TOXICITY [None]
  - DRUG WITHDRAWAL SYNDROME NEONATAL [None]
  - FEEDING DISORDER NEONATAL [None]
  - IRRITABILITY [None]
  - SOMNOLENCE NEONATAL [None]
  - TREMOR NEONATAL [None]
